FAERS Safety Report 10143736 (Version 1)
Quarter: 2014Q2

REPORT INFORMATION
  Report Type: Spontaneous
  Country: AU (occurrence: AU)
  Receive Date: 20140430
  Receipt Date: 20140430
  Transmission Date: 20141212
  Serious: Yes (Other)
  Sender: FDA-Public Use
  Company Number: AU-ACTAVIS PTY LTD-2014-08353

PATIENT
  Age: 46 Year
  Sex: Female

DRUGS (7)
  1. RISPERIDONE (UNKNOWN) [Suspect]
     Indication: HALLUCINATION, AUDITORY
     Dosage: 4 MG, UNKNOWN
     Route: 065
  2. ZIPRASIDONE (UNKNOWN) [Suspect]
     Indication: HALLUCINATION, AUDITORY
     Dosage: 60 MG, UNKNOWN
     Route: 065
  3. ARIPIPRAZOLE (UNKNOWN) [Suspect]
     Indication: HALLUCINATION, AUDITORY
     Dosage: 10 MG, DAILY
     Route: 065
  4. SODIUM VALPROATE [Concomitant]
     Indication: BORDERLINE PERSONALITY DISORDER
     Dosage: 2 G, DAILY
     Route: 065
  5. SODIUM VALPROATE [Concomitant]
     Indication: BIPOLAR DISORDER
  6. MIRTAZAPINE [Concomitant]
     Indication: BORDERLINE PERSONALITY DISORDER
     Dosage: 45 MG, DAILY
     Route: 065
  7. MIRTAZAPINE [Concomitant]
     Indication: BIPOLAR DISORDER

REACTIONS (1)
  - Tardive dyskinesia [Recovered/Resolved]
